FAERS Safety Report 9002167 (Version 1)
Quarter: 2013Q1

REPORT INFORMATION
  Report Type: Spontaneous
  Country: US (occurrence: None)
  Receive Date: 20130103
  Receipt Date: 20130103
  Transmission Date: 20140127
  Serious: No
  Sender: FDA-Public Use
  Company Number: None

PATIENT
  Age: 49 Year
  Sex: Female

DRUGS (1)
  1. ENBREL [Suspect]
     Dosage: 50MG  WEEKLY  SQ
     Route: 058
     Dates: start: 20121207

REACTIONS (2)
  - Urticaria [None]
  - Rash [None]
